FAERS Safety Report 5788712-9 (Version None)
Quarter: 2008Q2

REPORT INFORMATION
  Report Type: 
  Country: None (occurrence: None)
  Receive Date: 20080626
  Receipt Date: 20080616
  Transmission Date: 20081010
  Serious: Yes (Other)
  Sender: FDA-Public Use
  Company Number: DE-WYE-G01697408

PATIENT
  Sex: Male

DRUGS (2)
  1. VENLAFAXINE HCL [Suspect]
     Indication: DEPRESSION
     Dosage: 75 MG (FREQUENCY UNKNOWN)
     Route: 048
     Dates: start: 20080529
  2. BISOPROLOL FUMARATE [Concomitant]
     Route: 048
     Dates: start: 20070301

REACTIONS (8)
  - DIZZINESS POSTURAL [None]
  - DRUG INEFFECTIVE [None]
  - EJACULATION DISORDER [None]
  - FALL [None]
  - RESIDUAL URINE [None]
  - SKIN LACERATION [None]
  - SYNCOPE [None]
  - URINARY RETENTION [None]
